FAERS Safety Report 4886113-9 (Version None)
Quarter: 2006Q1

REPORT INFORMATION
  Report Type: 
  Country: None (occurrence: None)
  Receive Date: 20060118
  Receipt Date: 20060118
  Transmission Date: 20060701
  Serious: Yes (Hospitalization)
  Sender: FDA-Public Use
  Company Number: None

PATIENT
  Age: 34 Year
  Sex: Male
  Weight: 64 kg

DRUGS (9)
  1. TACROLIMUS [Suspect]
     Indication: LUNG TRANSPLANT
     Dosage: 2 MG BID PO
     Route: 048
     Dates: start: 20051021, end: 20051023
  2. TACROLIMUS [Suspect]
     Indication: PULMONARY FIBROSIS
     Dosage: 2 MG BID PO
     Route: 048
     Dates: start: 20051021, end: 20051023
  3. CEFIPEM [Concomitant]
  4. GANCICLOVIR [Concomitant]
  5. MMF [Concomitant]
  6. PREDNISONME [Concomitant]
  7. SEPTRA [Concomitant]
  8. ZANTAC [Concomitant]
  9. NYSTATIN [Concomitant]

REACTIONS (2)
  - INCORRECT DOSE ADMINISTERED [None]
  - RENAL FAILURE ACUTE [None]
